FAERS Safety Report 20030342 (Version 1)
Quarter: 2021Q4

REPORT INFORMATION
  Report Type: Spontaneous
  Country: JP (occurrence: JP)
  Receive Date: 20211103
  Receipt Date: 20211103
  Transmission Date: 20220303
  Serious: Yes (Other)
  Sender: FDA-Public Use
  Company Number: JP-OTSUKA-010099

PATIENT

DRUGS (1)
  1. ABILIFY [Suspect]
     Active Substance: ARIPIPRAZOLE
     Indication: Product used for unknown indication
     Route: 048

REACTIONS (5)
  - Infection susceptibility increased [Unknown]
  - Abnormal faeces [Unknown]
  - Hordeolum [Unknown]
  - Gastrointestinal disorder [Unknown]
  - Psychiatric symptom [Unknown]
